FAERS Safety Report 18200210 (Version 2)
Quarter: 2020Q3

REPORT INFORMATION
  Report Type: Spontaneous
  Country: GB (occurrence: GB)
  Receive Date: 20200826
  Receipt Date: 20200910
  Transmission Date: 20201103
  Serious: Yes (Other)
  Sender: FDA-Public Use
  Company Number: GB-REGENERON PHARMACEUTICALS, INC.-2020-72506

PATIENT

DRUGS (1)
  1. EYLEA [Suspect]
     Active Substance: AFLIBERCEPT
     Indication: NEOVASCULAR AGE-RELATED MACULAR DEGENERATION
     Dosage: LEFT EYE, TOTAL EYLEA DOSE AND LAST DOSE WERE NOT REPORTED.

REACTIONS (1)
  - Retinal pigment epitheliopathy [Recovered/Resolved]

NARRATIVE: CASE EVENT DATE: 20200630
